FAERS Safety Report 5749757-8 (Version None)
Quarter: 2008Q2

REPORT INFORMATION
  Report Type: 
  Country: None (occurrence: None)
  Receive Date: 20080527
  Receipt Date: 20080519
  Transmission Date: 20081010
  Serious: Yes (Hospitalization)
  Sender: FDA-Public Use
  Company Number: ES-ELI_LILLY_AND_COMPANY-ES200805003909

PATIENT
  Age: 74 Year
  Sex: Female

DRUGS (5)
  1. FORTEO [Suspect]
     Indication: OSTEOPOROSIS
     Dosage: 20 UG, UNKNOWN
     Route: 058
     Dates: start: 20070601
  2. TERBASMIN [Concomitant]
     Dosage: UNK, UNKNOWN
     Route: 065
  3. ADIRO [Concomitant]
     Dosage: UNK, UNKNOWN
     Route: 065
  4. ADALAT [Concomitant]
     Dosage: UNK, UNKNOWN
     Route: 065
  5. ANTI-DIABETICS [Concomitant]
     Dosage: UNK, UNKNOWN
     Route: 065

REACTIONS (5)
  - ASPHYXIA [None]
  - FATIGUE [None]
  - PYREXIA [None]
  - RESPIRATORY FAILURE [None]
  - VOMITING [None]
